FAERS Safety Report 7682957-9 (Version None)
Quarter: 2011Q3

REPORT INFORMATION
  Report Type: 
  Country: None (occurrence: None)
  Receive Date: 20110815
  Receipt Date: 20110808
  Transmission Date: 20111222
  Serious: Yes (Other)
  Sender: FDA-Public Use
  Company Number: US-CEPHALON-US017509

PATIENT
  Sex: Female
  Weight: 41 kg

DRUGS (13)
  1. POTASSIUM CHLORIDE [Concomitant]
     Indication: MINERAL SUPPLEMENTATION
     Route: 048
  2. PREDNISONE [Concomitant]
     Indication: PAIN
  3. VITAMIN TAB [Concomitant]
     Indication: MEDICAL DIET
     Route: 048
     Dates: start: 20030101
  4. PROVIGIL [Suspect]
     Indication: NARCOLEPSY
     Route: 048
     Dates: start: 20050101
  5. DALMANE [Concomitant]
     Indication: SLEEP DISORDER
     Route: 048
  6. ATENOLOL [Concomitant]
     Indication: HEART RATE IRREGULAR
     Route: 048
     Dates: start: 20020101
  7. PREDNISONE [Concomitant]
     Indication: BONE PAIN
     Route: 048
     Dates: start: 19910101
  8. SOMA [Concomitant]
     Indication: MUSCLE SPASMS
     Route: 048
  9. PRILOSEC [Concomitant]
     Indication: GASTROOESOPHAGEAL REFLUX DISEASE
     Route: 048
     Dates: start: 20050101
  10. FUROSEMIDE [Concomitant]
     Indication: FLUID RETENTION
     Route: 048
     Dates: start: 20030101
  11. PROGESTERONE/SOYBEAN [Concomitant]
     Indication: PROGESTERONE DECREASED
     Route: 048
  12. PROVIGIL [Suspect]
     Indication: SLEEP APNOEA SYNDROME
     Route: 048
  13. FIORINAL [Concomitant]
     Indication: PAIN
     Dosage: 2 EVERY 4 HOURS PRN
     Route: 048
     Dates: start: 19640101

REACTIONS (5)
  - FEELING ABNORMAL [None]
  - DIZZINESS [None]
  - DRUG TOLERANCE [None]
  - CONFUSIONAL STATE [None]
  - LOSS OF CONSCIOUSNESS [None]
